FAERS Safety Report 7987560-9 (Version None)
Quarter: 2011Q4

REPORT INFORMATION
  Report Type: 
  Country: None (occurrence: None)
  Receive Date: 20111216
  Receipt Date: 20110428
  Transmission Date: 20120403
  Serious: No
  Sender: FDA-Public Use
  Company Number: US-BRISTOL-MYERS SQUIBB COMPANY-15671266

PATIENT
  Age: 34 Year
  Sex: Male

DRUGS (4)
  1. ABILIFY [Suspect]
     Indication: MANIA
     Dosage: HALF DOSE(25MG)
     Dates: start: 20110412
  2. ABILIFY [Suspect]
     Indication: AGITATION
     Dosage: HALF DOSE(25MG)
     Dates: start: 20110412
  3. CYMBALTA [Suspect]
  4. CELEXA [Suspect]

REACTIONS (4)
  - VOMITING [None]
  - SEDATION [None]
  - TREMOR [None]
  - CHILLS [None]
